FAERS Safety Report 9024385 (Version 2)
Quarter: 2013Q4

REPORT INFORMATION
  Report Type: Report from Study
  Country: ES (occurrence: ES)
  Receive Date: 20130121
  Receipt Date: 20131113
  Transmission Date: 20140711
  Serious: Yes (Hospitalization)
  Sender: FDA-Public Use
  Company Number: ES-AMGEN-ESPCT2013003420

PATIENT
  Age: 68 Year
  Sex: Female

DRUGS (3)
  1. PANITUMUMAB [Suspect]
     Indication: GASTROOESOPHAGEAL CANCER
     Dosage: 6 MG/KG, Q3WK
     Route: 042
     Dates: start: 20111229
  2. DOCETAXEL [Concomitant]
     Indication: GASTROOESOPHAGEAL CANCER
     Dosage: 50 MG/M2, Q3WK
     Route: 042
     Dates: start: 20111229
  3. CISPLATINO [Concomitant]
     Indication: GASTROOESOPHAGEAL CANCER
     Dosage: 50 MG/M2, Q3WK
     Route: 042
     Dates: start: 20111229

REACTIONS (4)
  - Neutropenia [Recovered/Resolved]
  - Anaemia [Recovered/Resolved]
  - Vomiting [Recovered/Resolved]
  - Mucosal inflammation [Recovered/Resolved]
